FAERS Safety Report 10025915 (Version 2)
Quarter: 2014Q2

REPORT INFORMATION
  Report Type: Report from Study
  Country: FR (occurrence: FR)
  Receive Date: 20140320
  Receipt Date: 20140501
  Transmission Date: 20141212
  Serious: Yes (Life-Threatening)
  Sender: FDA-Public Use
  Company Number: FR-B.I. PHARMACEUTICALS,INC./RIDGEFIELD-2014-BI-11957BI

PATIENT
  Age: 89 Year
  Sex: Male
  Weight: 60.8 kg

DRUGS (1)
  1. DABIGATRAN [Suspect]
     Indication: ANTICOAGULANT THERAPY
     Dosage: 220 MG
     Route: 048
     Dates: start: 20130911, end: 20131229

REACTIONS (1)
  - Cerebrovascular accident [Recovered/Resolved with Sequelae]
